FAERS Safety Report 8903792 (Version 1)
Quarter: 2012Q4

REPORT INFORMATION
  Report Type: 
  Country: US (occurrence: US)
  Receive Date: 20121113
  Receipt Date: 20121113
  Transmission Date: 20130627
  Serious: No
  Sender: FDA-Public Use
  Company Number: US-009507513-1210USA012752

PATIENT

DRUGS (1)
  1. EMEND [Suspect]
     Route: 041

REACTIONS (3)
  - Infusion site extravasation [Unknown]
  - Infusion related reaction [Unknown]
  - Pain [Unknown]
